FAERS Safety Report 25170714 (Version 1)
Quarter: 2025Q2

REPORT INFORMATION
  Report Type: Spontaneous
  Country: PL (occurrence: PL)
  Receive Date: 20250408
  Receipt Date: 20250408
  Transmission Date: 20250717
  Serious: Yes (Hospitalization, Other)
  Sender: SANDOZ
  Company Number: PL-ABBVIE-6193194

PATIENT
  Age: 42 Year
  Sex: Female

DRUGS (1)
  1. ADALIMUMAB [Suspect]
     Active Substance: ADALIMUMAB
     Indication: Crohn^s disease
     Route: 065
     Dates: start: 201112

REACTIONS (18)
  - Gastrointestinal fistula [Recovered/Resolved]
  - Infected fistula [Unknown]
  - Post procedural fistula [Recovered/Resolved]
  - Anastomotic fistula [Unknown]
  - Anastomotic leak [Unknown]
  - Stoma site haemorrhage [Recovered/Resolved]
  - Pelvic abscess [Unknown]
  - Proctitis [Unknown]
  - Endocarditis bacterial [Unknown]
  - Stoma site ulcer [Unknown]
  - White blood cell count increased [Unknown]
  - Drug specific antibody present [Unknown]
  - Diarrhoea haemorrhagic [Recovering/Resolving]
  - Clostridium difficile infection [Recovered/Resolved]
  - Intestinal fistula [Unknown]
  - Abscess intestinal [Recovered/Resolved]
  - Infection [Recovered/Resolved]
  - Drug ineffective [Unknown]

NARRATIVE: CASE EVENT DATE: 20120201
